FAERS Safety Report 10771781 (Version 1)
Quarter: 2015Q1

REPORT INFORMATION
  Report Type: Report from Study
  Country: GB (occurrence: GB)
  Receive Date: 20150206
  Receipt Date: 20150206
  Transmission Date: 20150721
  Serious: Yes (Hospitalization)
  Sender: FDA-Public Use
  Company Number: GB-ROCHE-1531042

PATIENT
  Age: 78 Year
  Sex: Female
  Weight: 62 kg

DRUGS (9)
  1. BISOPROLOL FUMARATE. [Concomitant]
     Active Substance: BISOPROLOL FUMARATE
     Route: 065
     Dates: start: 20090113
  2. BEVACIZUMAB [Suspect]
     Active Substance: BEVACIZUMAB
     Indication: GASTRIC CANCER
     Dosage: LAST DOSE PRIOR TO SAE ON 22/APR/2014
     Route: 065
     Dates: start: 20130911
  3. EPIRUBICIN [Suspect]
     Active Substance: EPIRUBICIN
     Indication: GASTRIC CANCER
     Dosage: LAST DOSE PRIOR TO SAE  WAS 60MG ON 22/APR/2014
     Route: 042
     Dates: start: 20130911
  4. CAPECITABINE. [Suspect]
     Active Substance: CAPECITABINE
     Indication: GASTRIC CANCER
     Dosage: LAST DOSE PRIOR TO SAE ON 22/APR/2014
     Route: 048
     Dates: start: 20130911
  5. CISPLATIN. [Suspect]
     Active Substance: CISPLATIN
     Indication: GASTRIC CANCER
     Dosage: LAST DOSE PRIOR TO SAE WAS 50MG ON 22/APR/2014
     Route: 042
     Dates: start: 20130911
  6. LANSOPRAZOLE. [Concomitant]
     Active Substance: LANSOPRAZOLE
     Route: 065
     Dates: start: 20130925
  7. AMLODIPINE [Concomitant]
     Active Substance: AMLODIPINE BESYLATE
     Route: 065
     Dates: start: 20130410
  8. PERINDOPRIL [Concomitant]
     Active Substance: PERINDOPRIL
     Route: 065
     Dates: start: 20130919
  9. AMITRIPTILINA [Concomitant]
     Active Substance: AMITRIPTYLINE HYDROCHLORIDE
     Route: 065
     Dates: start: 20040331

REACTIONS (1)
  - Anaemia [Recovered/Resolved]

NARRATIVE: CASE EVENT DATE: 20140416
